FAERS Safety Report 23872869 (Version 4)
Quarter: 2025Q3

REPORT INFORMATION
  Report Type: Spontaneous
  Country: CA (occurrence: CA)
  Receive Date: 20240520
  Receipt Date: 20250916
  Transmission Date: 20251020
  Serious: Yes (Hospitalization, Other)
  Sender: DR REDDYS
  Company Number: None

PATIENT
  Age: 81 Year
  Sex: Male

DRUGS (24)
  1. AZACITIDINE [Suspect]
     Active Substance: AZACITIDINE
     Indication: Product used for unknown indication
  2. AZACITIDINE [Suspect]
     Active Substance: AZACITIDINE
  3. AZACITIDINE [Suspect]
     Active Substance: AZACITIDINE
     Indication: Product used for unknown indication
     Route: 048
  4. AZACITIDINE [Suspect]
     Active Substance: AZACITIDINE
     Route: 048
  5. AZACITIDINE [Suspect]
     Active Substance: AZACITIDINE
     Route: 048
  6. AZACITIDINE [Suspect]
     Active Substance: AZACITIDINE
     Route: 048
  7. VENETOCLAX [Suspect]
     Active Substance: VENETOCLAX
     Indication: Acute myeloid leukaemia
     Route: 048
  8. VENETOCLAX [Suspect]
     Active Substance: VENETOCLAX
     Route: 048
  9. VENETOCLAX [Suspect]
     Active Substance: VENETOCLAX
     Route: 048
  10. VENETOCLAX [Suspect]
     Active Substance: VENETOCLAX
     Route: 048
  11. VENETOCLAX [Suspect]
     Active Substance: VENETOCLAX
     Route: 048
  12. VENETOCLAX [Suspect]
     Active Substance: VENETOCLAX
     Route: 048
  13. VENETOCLAX [Suspect]
     Active Substance: VENETOCLAX
     Route: 048
  14. VENETOCLAX [Suspect]
     Active Substance: VENETOCLAX
     Route: 048
  15. VENETOCLAX [Suspect]
     Active Substance: VENETOCLAX
     Route: 048
  16. VENETOCLAX [Suspect]
     Active Substance: VENETOCLAX
     Route: 048
  17. VENETOCLAX [Suspect]
     Active Substance: VENETOCLAX
     Route: 048
  18. VENETOCLAX [Suspect]
     Active Substance: VENETOCLAX
     Route: 048
  19. VENETOCLAX [Suspect]
     Active Substance: VENETOCLAX
     Route: 048
  20. VENETOCLAX [Suspect]
     Active Substance: VENETOCLAX
     Route: 048
  21. COVID-19 VACCINE [Concomitant]
     Indication: COVID-19 immunisation
     Route: 030
  22. COVID-19 VACCINE [Concomitant]
     Indication: COVID-19 prophylaxis
  23. CEFTAZIDIME PENTAHYDRATE [Concomitant]
     Active Substance: CEFTAZIDIME
     Indication: Febrile neutropenia
     Route: 042
  24. VANCOMYCIN HYDROCHLORIDE [Concomitant]
     Active Substance: VANCOMYCIN HYDROCHLORIDE
     Indication: Product used for unknown indication
     Route: 065

REACTIONS (10)
  - Clostridium colitis [Recovered/Resolved]
  - Rash maculo-papular [Recovered/Resolved]
  - Atelectasis [Recovered/Resolved]
  - Clostridium test positive [Recovered/Resolved]
  - Delirium [Recovered/Resolved]
  - Diarrhoea [Recovered/Resolved]
  - Febrile neutropenia [Recovered/Resolved]
  - Hypoxia [Recovered/Resolved]
  - Mobility decreased [Recovered/Resolved]
  - Febrile neutropenia [Recovered/Resolved]
